FAERS Safety Report 25894877 (Version 1)
Quarter: 2025Q4

REPORT INFORMATION
  Report Type: Spontaneous
  Country: US (occurrence: US)
  Receive Date: 20251008
  Receipt Date: 20251008
  Transmission Date: 20260118
  Serious: No
  Sender: SANDOZ
  Company Number: US-SANDOZ-SDZ2025US071696

PATIENT

DRUGS (1)
  1. ESTRADIOL [Suspect]
     Active Substance: ESTRADIOL
     Indication: Product used for unknown indication
     Dosage: (STRENGTH 0.025 MG / 1 10)
     Route: 065

REACTIONS (4)
  - Blood bilirubin increased [Unknown]
  - Blood pressure decreased [Unknown]
  - Blood cholesterol decreased [Unknown]
  - Wrong technique in product usage process [Unknown]
